FAERS Safety Report 25047080 (Version 1)
Quarter: 2025Q1

REPORT INFORMATION
  Report Type: Spontaneous
  Country: CN (occurrence: CN)
  Receive Date: 20250306
  Receipt Date: 20250306
  Transmission Date: 20250409
  Serious: Yes (Other)
  Sender: NOVARTIS
  Company Number: CN-002147023-NVSC2025CN035800

PATIENT
  Age: 90 Year
  Sex: Female
  Weight: 42 kg

DRUGS (4)
  1. SACUBITRIL\VALSARTAN [Suspect]
     Active Substance: SACUBITRIL\VALSARTAN
     Indication: Cardiac failure
     Dosage: 50.000 MG, BID
     Route: 048
     Dates: start: 20250115, end: 20250116
  2. OMEPRAZOLE SODIUM [Suspect]
     Active Substance: OMEPRAZOLE SODIUM
     Indication: Upper gastrointestinal haemorrhage
     Dosage: 80.000 MG, QD
     Route: 042
     Dates: start: 20250111, end: 20250121
  3. OMEPRAZOLE SODIUM [Suspect]
     Active Substance: OMEPRAZOLE SODIUM
     Dosage: 40.000 MG, QD (PUMP INJECTION) (POWDER-INJECTION)
     Route: 065
     Dates: start: 20250111, end: 20250121
  4. SODIUM CHLORIDE [Concomitant]
     Active Substance: SODIUM CHLORIDE
     Dosage: 50.000 ML, QD (PUMP INJECTION)
     Route: 065
     Dates: start: 20250111, end: 20250121

REACTIONS (4)
  - Dizziness [Recovered/Resolved]
  - Asthenia [Recovered/Resolved]
  - Hypotension [Recovered/Resolved]
  - Hypoglycaemia [Unknown]

NARRATIVE: CASE EVENT DATE: 20250116
